FAERS Safety Report 6796304-8 (Version None)
Quarter: 2010Q2

REPORT INFORMATION
  Report Type: 
  Country: None (occurrence: None)
  Receive Date: 20100624
  Receipt Date: 20100624
  Transmission Date: 20101027
  Serious: No
  Sender: FDA-Public Use
  Company Number: None

PATIENT
  Age: 33 Year
  Sex: Female
  Weight: 77.1115 kg

DRUGS (1)
  1. AFRIN [Suspect]
     Indication: NASAL CONGESTION
     Dosage: 2-3 SPRAYS IN EACH NOSTRIL EVERY 10-12 HOURS NASAL
     Route: 045
     Dates: start: 20100620, end: 20100622

REACTIONS (2)
  - AGEUSIA [None]
  - ANOSMIA [None]
